FAERS Safety Report 21411772 (Version 1)
Quarter: 2022Q4

REPORT INFORMATION
  Report Type: Spontaneous
  Country: JP (occurrence: JP)
  Receive Date: 20221005
  Receipt Date: 20221005
  Transmission Date: 20230113
  Serious: Yes (Other)
  Sender: FDA-Public Use
  Company Number: JP-ELI_LILLY_AND_COMPANY-JP202210000076

PATIENT
  Age: 70 Year
  Sex: Male

DRUGS (1)
  1. NECITUMUMAB [Suspect]
     Active Substance: NECITUMUMAB
     Indication: Product used for unknown indication
     Dosage: 800 MG
     Route: 042

REACTIONS (3)
  - Lung opacity [Recovered/Resolved]
  - Pulmonary toxicity [Unknown]
  - Hypomagnesaemia [Recovered/Resolved]
